FAERS Safety Report 7299710-0 (Version None)
Quarter: 2011Q1

REPORT INFORMATION
  Report Type: 
  Country: None (occurrence: None)
  Receive Date: 20110217
  Receipt Date: 20110211
  Transmission Date: 20110831
  Serious: Yes (Disabling)
  Sender: FDA-Public Use
  Company Number: US-US-EMD SERONO, INC.-230986J10USA

PATIENT
  Sex: Female
  Weight: 95 kg

DRUGS (7)
  1. VALIUM [Concomitant]
  2. TYLENOL [Concomitant]
  3. UNSPECIFIED STEROIDS [Concomitant]
     Indication: MULTIPLE SCLEROSIS RELAPSE
     Route: 042
     Dates: start: 20100102, end: 20100103
  4. TIZANIDINE [Concomitant]
  5. REBIF [Suspect]
     Indication: MULTIPLE SCLEROSIS
     Route: 058
     Dates: start: 20091115
  6. NUVIGIL [Concomitant]
  7. IBUPROFEN [Concomitant]

REACTIONS (4)
  - HYPOAESTHESIA [None]
  - NERVE INJURY [None]
  - MUSCULOSKELETAL DISORDER [None]
  - LABORATORY TEST ABNORMAL [None]
